FAERS Safety Report 18006292 (Version 2)
Quarter: 2020Q3

REPORT INFORMATION
  Report Type: Report from Study
  Country: None (occurrence: GR)
  Receive Date: 20200709
  Receipt Date: 20200722
  Transmission Date: 20201103
  Serious: Yes (Other)
  Sender: FDA-Public Use
  Company Number: GR-ABBVIE-20K-066-3475595-00

PATIENT
  Age: 77 Year
  Sex: Female

DRUGS (10)
  1. CLONOTRIL [Concomitant]
     Active Substance: CLONAZEPAM
     Indication: PRODUCT USED FOR UNKNOWN INDICATION
     Route: 048
  2. GALOPRAN [Concomitant]
     Indication: PRODUCT USED FOR UNKNOWN INDICATION
  3. THYROXINE [Concomitant]
     Active Substance: LEVOTHYROXINE
     Indication: HYPERTHYROIDISM
     Route: 048
  4. GALOPRAN [Concomitant]
     Indication: DEPRESSION
     Route: 048
  5. DUODOPA [Suspect]
     Active Substance: CARBIDOPA\LEVODOPA
     Indication: PARKINSON^S DISEASE
     Dosage: MORNING DOSE: 12ML; CONTINUOUS RATE: 2.9ML; EXTRA DOSE: 1ML
     Route: 050
     Dates: start: 20180605, end: 20200707
  6. BETMIGA [Concomitant]
     Active Substance: MIRABEGRON
     Indication: PRODUCT USED FOR UNKNOWN INDICATION
     Route: 048
     Dates: start: 201812
  7. DIHYDRALAZINE [Concomitant]
     Active Substance: DIHYDRALAZINE
     Indication: PRODUCT USED FOR UNKNOWN INDICATION
     Route: 048
  8. QUEPIN [Concomitant]
     Active Substance: QUETIAPINE
     Indication: PRODUCT USED FOR UNKNOWN INDICATION
     Route: 048
  9. SEROPRAM [Concomitant]
     Indication: PRODUCT USED FOR UNKNOWN INDICATION
     Route: 048
  10. DUODOPA [Suspect]
     Active Substance: CARBIDOPA\LEVODOPA
     Dosage: MORNING DOSE: 12ML; CONTINUOUS RATE: 3.1ML; EXTRA DOSE: 1ML
     Route: 050
     Dates: start: 20200707

REACTIONS (5)
  - Balance disorder [Not Recovered/Not Resolved]
  - Mobility decreased [Recovering/Resolving]
  - Craniocerebral injury [Recovered/Resolved]
  - Fall [Recovered/Resolved]
  - Gait disturbance [Unknown]

NARRATIVE: CASE EVENT DATE: 2019
